FAERS Safety Report 8338864-1 (Version None)
Quarter: 2012Q2

REPORT INFORMATION
  Report Type: 
  Country: None (occurrence: None)
  Receive Date: 20120504
  Receipt Date: 20120427
  Transmission Date: 20120825
  Serious: Yes (Life-Threatening, Other)
  Sender: FDA-Public Use
  Company Number: CHPA2012US006176

PATIENT
  Age: 44 Year
  Sex: Female

DRUGS (1)
  1. EXCEDRIN (MIGRAINE) [Suspect]
     Indication: MIGRAINE
     Dosage: 2 DF, QD
     Route: 048
     Dates: start: 20110701, end: 20120201

REACTIONS (12)
  - MUSCLE CONTRACTURE [None]
  - DIZZINESS [None]
  - MUSCLE TWITCHING [None]
  - DYSPNOEA [None]
  - EPILEPSY [None]
  - FOAMING AT MOUTH [None]
  - HEADACHE [None]
  - MALAISE [None]
  - DYSKINESIA [None]
  - HYPOPNOEA [None]
  - FEELING ABNORMAL [None]
  - WITHDRAWAL SYNDROME [None]
